FAERS Safety Report 6064988-8 (Version None)
Quarter: 2009Q1

REPORT INFORMATION
  Report Type: 
  Country: None (occurrence: None)
  Receive Date: 20090204
  Receipt Date: 20090128
  Transmission Date: 20090719
  Serious: Yes (Hospitalization)
  Sender: FDA-Public Use
  Company Number: US-ASTRAZENECA-2009UW02567

PATIENT
  Age: 80 Year
  Sex: Female

DRUGS (8)
  1. TOPROL-XL [Suspect]
     Route: 048
     Dates: start: 20020401, end: 20050101
  2. TOPROL-XL [Suspect]
     Route: 048
     Dates: start: 20050401, end: 20090128
  3. TOPROL-XL [Suspect]
     Route: 048
     Dates: start: 20090129
  4. ACTONEL [Concomitant]
     Dates: end: 20040901
  5. VITAMIN B COMPLEX CAP [Concomitant]
  6. HYDROCHLOROTHIAZIDE [Concomitant]
  7. CALCIUM [Concomitant]
  8. NITROL [Concomitant]

REACTIONS (6)
  - DIARRHOEA [None]
  - DYSPHAGIA [None]
  - GASTROINTESTINAL DISORDER [None]
  - MUSCLE SPASMS [None]
  - NAUSEA [None]
  - OESOPHAGITIS [None]
